FAERS Safety Report 6256548-0 (Version None)
Quarter: 2009Q2

REPORT INFORMATION
  Report Type: 
  Country: None (occurrence: None)
  Receive Date: 20090630
  Receipt Date: 20090630
  Transmission Date: 20091009
  Serious: Yes (Other)
  Sender: FDA-Public Use
  Company Number: None

PATIENT
  Age: 52 Year
  Sex: Male
  Weight: 90.7194 kg

DRUGS (2)
  1. PROPOFOL [Suspect]
     Indication: COLONOSCOPY
     Dosage: 350MG TOTAL FOR CASE IV 1016AM TO 1037AM
  2. PROPOFOL [Suspect]
     Indication: SEDATIVE THERAPY
     Dosage: 350MG TOTAL FOR CASE IV 1016AM TO 1037AM

REACTIONS (4)
  - CHILLS [None]
  - FATIGUE [None]
  - FEELING ABNORMAL [None]
  - TREMOR [None]
